FAERS Safety Report 8899789 (Version 2)
Quarter: 2012Q4

REPORT INFORMATION
  Report Type: 
  Country: US (occurrence: US)
  Receive Date: 20121109
  Receipt Date: 20121207
  Transmission Date: 20130627
  Serious: No
  Sender: FDA-Public Use
  Company Number: US-009507513-1211USA001219

PATIENT
  Sex: Female

DRUGS (3)
  1. PEG-INTRON [Suspect]
     Indication: HEPATITIS C
     Dosage: UNK
     Dates: start: 20121016
  2. RIBAVIRIN [Suspect]
     Indication: HEPATITIS C
     Dosage: UNK
     Route: 048
     Dates: start: 20121016
  3. VICTRELIS [Suspect]
     Indication: HEPATITIS C
     Dosage: UNK
     Dates: start: 20121129

REACTIONS (14)
  - Memory impairment [Unknown]
  - Anxiety [Unknown]
  - Injection site reaction [Unknown]
  - Pruritus [Unknown]
  - Dysgeusia [Unknown]
  - Fatigue [Unknown]
  - Anaemia [Unknown]
  - Headache [Unknown]
  - Pain [Unknown]
  - Pain [Unknown]
  - Ageusia [Unknown]
  - Abdominal pain upper [Unknown]
  - Hepatic pain [Unknown]
  - Musculoskeletal chest pain [Unknown]
